FAERS Safety Report 10230496 (Version 2)
Quarter: 2014Q2

REPORT INFORMATION
  Report Type: Spontaneous
  Country: US (occurrence: US)
  Receive Date: 20140611
  Receipt Date: 20140618
  Transmission Date: 20141212
  Serious: Yes (Other)
  Sender: FDA-Public Use
  Company Number: US-INCYTE CORPORATION-2014IN001055

PATIENT
  Sex: Male
  Weight: 69.84 kg

DRUGS (2)
  1. JAKAFI [Suspect]
     Indication: MYELOPROLIFERATIVE DISORDER
     Dosage: 10 MG, BID
     Route: 048
     Dates: start: 20131023
  2. JAKAFI [Suspect]
     Dosage: 10 MG AM AND 5 MG PM
     Route: 048
     Dates: start: 20140115, end: 20140416

REACTIONS (3)
  - White blood cell count increased [Recovered/Resolved]
  - Fatigue [Unknown]
  - Drug ineffective [Unknown]
